FAERS Safety Report 6278781-4 (Version None)
Quarter: 2009Q3

REPORT INFORMATION
  Report Type: 
  Country: None (occurrence: None)
  Receive Date: 20090723
  Receipt Date: 20070405
  Transmission Date: 20100115
  Serious: Yes (Hospitalization, Other)
  Sender: FDA-Public Use
  Company Number: US-ASTRAZENECA-2007UW02275

PATIENT
  Age: 12839 Day
  Sex: Female
  Weight: 78.7 kg

DRUGS (30)
  1. SEROQUEL [Suspect]
     Indication: SCHIZOPHRENIA
     Route: 048
     Dates: start: 20010927, end: 20021201
  2. SEROQUEL [Suspect]
     Indication: BIPOLAR DISORDER
     Route: 048
     Dates: start: 20010927, end: 20021201
  3. SEROQUEL [Suspect]
     Indication: MAJOR DEPRESSION
     Route: 048
     Dates: start: 20010927, end: 20021201
  4. SEROQUEL [Suspect]
     Dosage: 100 MG - 200 MG
     Route: 048
     Dates: start: 20010927
  5. SEROQUEL [Suspect]
     Dosage: 100 MG - 200 MG
     Route: 048
     Dates: start: 20010927
  6. SEROQUEL [Suspect]
     Dosage: 100 MG - 200 MG
     Route: 048
     Dates: start: 20010927
  7. SEROQUEL [Suspect]
     Dosage: 25 - 200 MG
     Route: 048
     Dates: start: 20040607, end: 20050401
  8. SEROQUEL [Suspect]
     Dosage: 25 - 200 MG
     Route: 048
     Dates: start: 20040607, end: 20050401
  9. SEROQUEL [Suspect]
     Dosage: 25 - 200 MG
     Route: 048
     Dates: start: 20040607, end: 20050401
  10. RISPERDAL [Suspect]
     Indication: SCHIZOPHRENIA
     Dates: start: 20041123, end: 20041222
  11. ABILIFY [Concomitant]
     Dates: start: 20050815, end: 20051001
  12. DEPAKOTE [Concomitant]
     Dates: start: 20041123
  13. DEPAKOTE [Concomitant]
     Dates: start: 20050701, end: 20050901
  14. TEGRETOL [Concomitant]
     Route: 048
     Dates: start: 20010720
  15. RESTORIL [Concomitant]
     Route: 048
     Dates: start: 20010928
  16. GEODON [Concomitant]
     Route: 048
     Dates: start: 20010928
  17. ZOLOFT [Concomitant]
     Route: 048
  18. TRIAVIL [Concomitant]
     Dosage: 4 MG/25 MG
     Route: 048
  19. REMERON [Concomitant]
     Route: 048
     Dates: start: 20011106
  20. PROZAC [Concomitant]
     Route: 048
     Dates: start: 20020219
  21. PROZAC [Concomitant]
     Route: 048
     Dates: start: 20031018
  22. LITHIUM CARBONATE [Concomitant]
     Route: 048
     Dates: start: 20051018
  23. TRAZODONE [Concomitant]
     Route: 048
  24. KLONOPIN [Concomitant]
     Route: 048
  25. ZYPREXA [Concomitant]
     Route: 048
     Dates: start: 20010612
  26. DECADRON [Concomitant]
     Dates: start: 20070802
  27. GLIPIZIDE [Concomitant]
     Dates: start: 20050913
  28. GLUCOPHAGE XR [Concomitant]
     Dates: start: 20070412
  29. DOXYCYCLINE [Concomitant]
     Dates: start: 20050421
  30. LEVAQUIN [Concomitant]
     Dates: start: 20050901

REACTIONS (23)
  - CONTUSION [None]
  - COUGH [None]
  - DEPRESSION SUICIDAL [None]
  - DIABETES MELLITUS INADEQUATE CONTROL [None]
  - DYSURIA [None]
  - FATIGUE [None]
  - GASTROOESOPHAGEAL REFLUX DISEASE [None]
  - HEADACHE [None]
  - HEPATIC CIRRHOSIS [None]
  - INSOMNIA [None]
  - NAUSEA [None]
  - NEUROPATHY PERIPHERAL [None]
  - OTITIS EXTERNA [None]
  - OTITIS MEDIA [None]
  - PARAESTHESIA [None]
  - PYELONEPHRITIS ACUTE [None]
  - PYREXIA [None]
  - RESPIRATORY TRACT CONGESTION [None]
  - SINUS HEADACHE [None]
  - TYPE 2 DIABETES MELLITUS [None]
  - VAGINAL DISCHARGE [None]
  - VAGINITIS BACTERIAL [None]
  - VISION BLURRED [None]
